FAERS Safety Report 9463551 (Version 3)
Quarter: 2014Q1

REPORT INFORMATION
  Report Type: Spontaneous
  Country: US (occurrence: US)
  Receive Date: 20130819
  Receipt Date: 20140221
  Transmission Date: 20141002
  Serious: No
  Sender: FDA-Public Use
  Company Number: US-B.I. PHARMACEUTICALS,INC./RIDGEFIELD-2013-BI-24266BP

PATIENT
  Age: 78 Year
  Sex: Female

DRUGS (1)
  1. COMBIVENT [Suspect]
     Indication: CHRONIC OBSTRUCTIVE PULMONARY DISEASE
     Dosage: STRENGTH: 20 MCG / 100 MCG; DAILY DOSE: 120 MCG/ 600 MCG
     Route: 055
     Dates: start: 201306

REACTIONS (10)
  - Cough [Recovered/Resolved]
  - Pulmonary congestion [Recovered/Resolved]
  - Rhinorrhoea [Recovered/Resolved]
  - Drug effect decreased [Recovered/Resolved]
  - Product quality issue [Recovered/Resolved]
  - Cough [Recovered/Resolved]
  - Pulmonary congestion [Recovered/Resolved]
  - Rhinorrhoea [Recovered/Resolved]
  - Drug effect decreased [Recovered/Resolved]
  - Product quality issue [Recovered/Resolved]
